FAERS Safety Report 10933667 (Version 2)
Quarter: 2015Q1

REPORT INFORMATION
  Report Type: Spontaneous
  Country: BR (occurrence: BR)
  Receive Date: 20150320
  Receipt Date: 20150326
  Transmission Date: 20150721
  Serious: Yes (Hospitalization, Other)
  Sender: FDA-Public Use
  Company Number: BR-ROCHE-1554083

PATIENT
  Age: 68 Year
  Sex: Male
  Weight: 71.65 kg

DRUGS (2)
  1. CYMEVENE [Suspect]
     Active Substance: GANCICLOVIR
     Route: 065
     Dates: start: 20150108, end: 20150112
  2. CYMEVENE [Suspect]
     Active Substance: GANCICLOVIR
     Indication: CYTOMEGALOVIRUS INFECTION
     Route: 065
     Dates: start: 20141211, end: 20141228

REACTIONS (3)
  - Cytomegalovirus test positive [Recovered/Resolved]
  - Therapeutic response decreased [Unknown]
  - Cytomegalovirus infection [Recovered/Resolved]

NARRATIVE: CASE EVENT DATE: 20141211
